FAERS Safety Report 5738965-8 (Version None)
Quarter: 2008Q2

REPORT INFORMATION
  Report Type: 
  Country: None (occurrence: None)
  Receive Date: 20080515
  Receipt Date: 20080505
  Transmission Date: 20081010
  Serious: Yes (Other)
  Sender: FDA-Public Use
  Company Number: US-ROCHE-549806

PATIENT
  Sex: Male

DRUGS (4)
  1. PEG-INTERFERON A-2A (RO 25-8310) [Suspect]
     Dosage: FORM: PRE-FILLED SYRINGE (PFS)
     Route: 065
     Dates: start: 20071116
  2. PEG-INTERFERON A-2A (RO 25-8310) [Suspect]
     Dosage: PATIENT ABOUT TO COMPLETE SIX MONTHS
     Route: 065
  3. RIBAVIRIN [Suspect]
     Route: 065
     Dates: start: 20071116
  4. RIBAVIRIN [Suspect]
     Dosage: PATIENT ABOUT TO COMPLETE SIX MONTHS
     Route: 065

REACTIONS (4)
  - DIVERTICULUM [None]
  - DRY SKIN [None]
  - FATIGUE [None]
  - RASH [None]
